FAERS Safety Report 16215670 (Version 2)
Quarter: 2019Q2

REPORT INFORMATION
  Report Type: Spontaneous
  Country: US (occurrence: US)
  Receive Date: 20190419
  Receipt Date: 20190501
  Transmission Date: 20190711
  Serious: Yes (Death, Other)
  Sender: FDA-Public Use
  Company Number: US-SA-2019SA108239

PATIENT
  Age: 71 Year
  Sex: Female

DRUGS (4)
  1. LIDOCAINE HYDROCHLORIDE. [Suspect]
     Active Substance: LIDOCAINE HYDROCHLORIDE
     Indication: VENTRICULAR TACHYCARDIA
     Dosage: SOLUTION FOR INJECTION
     Route: 065
  2. MYCOPHENOLATE MOFETIL. [Suspect]
     Active Substance: MYCOPHENOLATE MOFETIL
     Indication: MYOCARDITIS
  3. IPILIMUMAB [Concomitant]
     Active Substance: IPILIMUMAB
  4. AMIODARONE HYDROCHLORIDE. [Suspect]
     Active Substance: AMIODARONE HYDROCHLORIDE
     Indication: VENTRICULAR TACHYCARDIA

REACTIONS (5)
  - Bacteraemia [Fatal]
  - Disseminated intravascular coagulation [Fatal]
  - Propionibacterium infection [Fatal]
  - Drug ineffective [Fatal]
  - Multiple organ dysfunction syndrome [Fatal]
